FAERS Safety Report 4981607-X (Version None)
Quarter: 2006Q2

REPORT INFORMATION
  Report Type: 
  Country: None (occurrence: None)
  Receive Date: 20060420
  Receipt Date: 20060420
  Transmission Date: 20061013
  Serious: Yes (Hospitalization)
  Sender: FDA-Public Use
  Company Number: None

PATIENT
  Age: 49 Year
  Sex: Female
  Weight: 91 kg

DRUGS (6)
  1. TOPROL-XL [Suspect]
     Indication: HYPERTENSION
     Dosage: 50 MG DAILY
  2. VICODIN [Concomitant]
  3. LISINOPRIL [Concomitant]
  4. DIGOXIN [Concomitant]
  5. AMIODARONE HCL [Concomitant]
  6. DIAZEPAM [Concomitant]

REACTIONS (8)
  - ASTHENIA [None]
  - BRONCHOSPASM [None]
  - CHEST DISCOMFORT [None]
  - DYSPNOEA [None]
  - FATIGUE [None]
  - HYPERHIDROSIS [None]
  - PALPITATIONS [None]
  - VENTRICULAR TACHYCARDIA [None]
